FAERS Safety Report 5483473-5 (Version None)
Quarter: 2007Q4

REPORT INFORMATION
  Report Type: 
  Country: None (occurrence: None)
  Receive Date: 20071012
  Receipt Date: 20071008
  Transmission Date: 20080405
  Serious: Yes (Other)
  Sender: FDA-Public Use
  Company Number: US-BRISTOL-MYERS SQUIBB COMPANY-13933320

PATIENT
  Age: 62 Year
  Sex: Female

DRUGS (3)
  1. PLATINOL [Suspect]
     Route: 042
  2. CESAMET [Suspect]
     Indication: GASTRITIS
     Route: 048
  3. ADRIAMYCIN PFS [Suspect]
     Route: 042

REACTIONS (2)
  - ABDOMINAL PAIN [None]
  - GASTRITIS [None]
